FAERS Safety Report 11239373 (Version 1)
Quarter: 2015Q3

REPORT INFORMATION
  Report Type: Report from Study
  Country: CA (occurrence: None)
  Receive Date: 20150701
  Receipt Date: 20150701
  Transmission Date: 20151125
  Serious: Yes (Disabling)
  Sender: FDA-Public Use
  Company Number: 2015FE02122

PATIENT
  Age: 81 Year
  Sex: Male

DRUGS (6)
  1. COD LIVER OIL (CODE-LIVER OIL) [Concomitant]
  2. ATENOLOL. [Concomitant]
     Active Substance: ATENOLOL
  3. VIMOVO (ESOMEPRAZOLE MAGNESIUM, NAPROXEN) [Concomitant]
  4. VITAMIN D3 [Concomitant]
     Active Substance: CHOLECALCIFEROL
  5. DEGARELIX [Suspect]
     Active Substance: DEGARELIX
     Indication: PROSTATE CANCER
     Dosage: 80 MG, MONTHLY, SUBCUTANEOUS
     Route: 058
     Dates: start: 20141231
  6. VITAMIN K2 (MENATETRENONE) [Concomitant]

REACTIONS (1)
  - Transfusion [None]
